FAERS Safety Report 4309575-4 (Version None)
Quarter: 2004Q1

REPORT INFORMATION
  Report Type: 
  Country: None (occurrence: None)
  Receive Date: 20040301
  Receipt Date: 20040220
  Transmission Date: 20041129
  Serious: Yes (Other)
  Sender: FDA-Public Use
  Company Number: 2004197079JP

PATIENT
  Age: 77 Year
  Sex: Male
  Weight: 59 kg

DRUGS (5)
  1. CLINDAMYCIN HCL [Suspect]
     Indication: BRONCHITIS
     Dosage: 600 MG, DAILY, IV
     Route: 042
     Dates: start: 20040105, end: 20040108
  2. CLARITHROMYCIN [Suspect]
     Dosage: 200 MG, BID, ORAL
     Route: 048
     Dates: start: 20040105, end: 20040110
  3. DIPYRIDAMOLE [Concomitant]
  4. CODEINE PHOSPHATE [Concomitant]
  5. SOFALCONE (SOFALCONE) [Concomitant]

REACTIONS (2)
  - FLUSHING [None]
  - HYPOAESTHESIA ORAL [None]
